FAERS Safety Report 5937381-3 (Version None)
Quarter: 2008Q4

REPORT INFORMATION
  Report Type: 
  Country: None (occurrence: None)
  Receive Date: 20081031
  Receipt Date: 20081023
  Transmission Date: 20090506
  Serious: Yes (Death)
  Sender: FDA-Public Use
  Company Number: JP-BAXTER-2008BH011420

PATIENT
  Sex: Male
  Weight: 42 kg

DRUGS (2)
  1. EXTRANEAL [Suspect]
     Indication: PERITONEAL DIALYSIS
     Route: 033
     Dates: start: 20070801, end: 20081023
  2. DIANEAL PD-2 W/ DEXTROSE 1.5% [Suspect]
     Indication: PERITONEAL DIALYSIS
     Route: 033
     Dates: start: 20070301, end: 20081023

REACTIONS (3)
  - LUNG NEOPLASM MALIGNANT [None]
  - PNEUMONIA ASPIRATION [None]
  - SEPSIS [None]
